FAERS Safety Report 9567489 (Version 2)
Quarter: 2013Q3

REPORT INFORMATION
  Report Type: Spontaneous
  Country: US (occurrence: US)
  Receive Date: 20130930
  Receipt Date: 20130930
  Transmission Date: 20140515
  Serious: No
  Sender: FDA-Public Use
  Company Number: US-AMGEN-KDL037420

PATIENT
  Age: 73 Year
  Sex: Male

DRUGS (2)
  1. ENBREL [Suspect]
     Indication: RHEUMATOID ARTHRITIS
     Dosage: 25 MG, 2 TIMES/WK
     Dates: start: 20030418
  2. METHOTREXATE [Concomitant]
     Dosage: UNK

REACTIONS (5)
  - Acne [Unknown]
  - Pruritus [Unknown]
  - Rash [Unknown]
  - Rash papular [Unknown]
  - Malaise [Unknown]
